FAERS Safety Report 8125106-5 (Version None)
Quarter: 2012Q1

REPORT INFORMATION
  Report Type: 
  Country: None (occurrence: None)
  Receive Date: 20120209
  Receipt Date: 20120126
  Transmission Date: 20120608
  Serious: Yes (Death)
  Sender: FDA-Public Use
  Company Number: GB-ROCHE-1003352

PATIENT
  Sex: Female

DRUGS (15)
  1. ALENDRONIC ACID [Concomitant]
     Dates: start: 20090118
  2. BISOPROLOL FUMARATE [Concomitant]
     Dates: start: 20090113
  3. EZETIMIBE [Concomitant]
     Dates: start: 20080930
  4. FUROSEMIDE [Concomitant]
     Dates: start: 20090206
  5. PERINDOPRIL ERBUMINE [Concomitant]
     Dates: start: 20090206
  6. ADCAL-D3 [Concomitant]
  7. BUMETANIDE [Concomitant]
  8. TRIMETHOPRIM [Concomitant]
     Dates: start: 20090427, end: 20090515
  9. LUCENTIS [Suspect]
     Indication: RETINAL VEIN OCCLUSION
     Route: 050
     Dates: start: 20100614
  10. SPIRONOLACTONE [Concomitant]
  11. AGRIPPAL [Concomitant]
     Route: 050
     Dates: start: 20100614
  12. ACETAMINOPHEN [Concomitant]
     Dates: start: 20080822
  13. DIGOXIN [Concomitant]
  14. WARFARIN SODIUM [Concomitant]
     Dates: start: 20081014
  15. ENSURE PLUS [Concomitant]
     Dates: start: 20090217

REACTIONS (1)
  - DEATH [None]
